FAERS Safety Report 5344206-6 (Version None)
Quarter: 2007Q2

REPORT INFORMATION
  Report Type: 
  Country: None (occurrence: None)
  Receive Date: 20070531
  Receipt Date: 20070531
  Transmission Date: 20071010
  Serious: No
  Sender: FDA-Public Use
  Company Number: None

PATIENT
  Sex: Female
  Weight: 51.8 kg

DRUGS (1)
  1. TAXOL [Suspect]
     Dosage: 258 MG

REACTIONS (2)
  - CAPILLARY LEAK SYNDROME [None]
  - OEDEMA PERIPHERAL [None]
